FAERS Safety Report 26074789 (Version 1)
Quarter: 2025Q4

REPORT INFORMATION
  Report Type: Spontaneous
  Country: CA (occurrence: CA)
  Receive Date: 20251121
  Receipt Date: 20251121
  Transmission Date: 20260118
  Serious: Yes (Death, Life-Threatening, Hospitalization, Disabling, Congenital Anomaly, Other)
  Sender: Haleon PLC
  Company Number: CA-HALEON-2274437

PATIENT
  Age: 80 Year
  Sex: Male
  Weight: 69 kg

DRUGS (138)
  1. TUMS ULTRA [Suspect]
     Active Substance: CALCIUM CARBONATE
     Indication: Product used for unknown indication
  2. XYLOMETAZOLINE HYDROCHLORIDE [Suspect]
     Active Substance: XYLOMETAZOLINE HYDROCHLORIDE
     Indication: Product used for unknown indication
  3. FLONASE ALLERGY RELIEF [Suspect]
     Active Substance: FLUTICASONE PROPIONATE
     Indication: Product used for unknown indication
  4. FLONASE ALLERGY RELIEF [Suspect]
     Active Substance: FLUTICASONE PROPIONATE
  5. FLONASE ALLERGY RELIEF [Suspect]
     Active Substance: FLUTICASONE PROPIONATE
  6. ALOE VERA LEAF [Suspect]
     Active Substance: ALOE VERA LEAF
     Indication: Product used for unknown indication
  7. AMLODIPINE BESYLATE [Suspect]
     Active Substance: AMLODIPINE BESYLATE
     Indication: Product used for unknown indication
  8. AMMONIUM CHLORIDE [Suspect]
     Active Substance: AMMONIUM CHLORIDE
     Indication: Product used for unknown indication
  9. ARANESP [Suspect]
     Active Substance: DARBEPOETIN ALFA
     Indication: Product used for unknown indication
  10. ATROVENT [Suspect]
     Active Substance: IPRATROPIUM BROMIDE
     Indication: Product used for unknown indication
  11. BETA CAROTENE [Suspect]
     Active Substance: BETA CAROTENE
     Indication: Product used for unknown indication
  12. BISMUTH SUBNITRATE [Suspect]
     Active Substance: BISMUTH SUBNITRATE
     Indication: Product used for unknown indication
  13. BUDESONIDE [Suspect]
     Active Substance: BUDESONIDE
     Indication: Product used for unknown indication
  14. BUDESONIDE [Suspect]
     Active Substance: BUDESONIDE
  15. BUDESONIDE [Suspect]
     Active Substance: BUDESONIDE
  16. CALCIUM LACTATE GLUCONATE [Suspect]
     Active Substance: CALCIUM LACTATE GLUCONATE
     Indication: Product used for unknown indication
  17. CALCIUM LACTATE GLUCONATE [Suspect]
     Active Substance: CALCIUM LACTATE GLUCONATE
  18. CALCIUM\MELATONIN\PYRIDOXINE HYDROCHLORIDE [Suspect]
     Active Substance: CALCIUM\MELATONIN\PYRIDOXINE HYDROCHLORIDE
     Indication: Product used for unknown indication
  19. HERBALS [Suspect]
     Active Substance: HERBALS
     Indication: Product used for unknown indication
  20. CANDESARTAN [Suspect]
     Active Substance: CANDESARTAN
     Indication: Product used for unknown indication
  21. SAFFLOWER [Suspect]
     Active Substance: SAFFLOWER
     Indication: Product used for unknown indication
  22. CEFTRIAXONE SODIUM [Suspect]
     Active Substance: CEFTRIAXONE SODIUM
     Indication: Product used for unknown indication
  23. DEXTROSE [Suspect]
     Active Substance: DEXTROSE MONOHYDRATE
     Indication: Product used for unknown indication
  24. DIPYRONE [Suspect]
     Active Substance: DIPYRONE
     Indication: Product used for unknown indication
  25. DIPYRONE [Suspect]
     Active Substance: DIPYRONE
  26. DIPYRONE [Suspect]
     Active Substance: DIPYRONE
  27. DOBUTAMINE HYDROCHLORIDE [Suspect]
     Active Substance: DOBUTAMINE HYDROCHLORIDE
     Indication: Product used for unknown indication
  28. DOBUTAMINE HYDROCHLORIDE [Suspect]
     Active Substance: DOBUTAMINE HYDROCHLORIDE
  29. DOMPERIDONE MALEATE [Suspect]
     Active Substance: DOMPERIDONE MALEATE
     Indication: Product used for unknown indication
  30. FOLIC ACID [Suspect]
     Active Substance: FOLIC ACID
     Indication: Product used for unknown indication
  31. NITROGLYCERIN [Suspect]
     Active Substance: NITROGLYCERIN
     Indication: Product used for unknown indication
  32. HYDROMORPHONE [Suspect]
     Active Substance: HYDROMORPHONE
     Indication: Product used for unknown indication
  33. HYDROMORPHONE HYDROCHLORIDE [Suspect]
     Active Substance: HYDROMORPHONE HYDROCHLORIDE
     Indication: Product used for unknown indication
  34. INFLUENZA VIRUS VACCINE [Suspect]
     Active Substance: INFLUENZA VIRUS VACCINE
     Indication: Product used for unknown indication
  35. IPRATROPIUM [Suspect]
     Active Substance: IPRATROPIUM
     Indication: Sleep disorder therapy
     Route: 055
  36. IPRATROPIUM [Suspect]
     Active Substance: IPRATROPIUM
     Indication: Off label use
  37. IPRATROPIUM [Suspect]
     Active Substance: IPRATROPIUM
     Indication: Intentional product misuse
  38. IPRATROPIUM [Suspect]
     Active Substance: IPRATROPIUM
     Indication: Dyspnoea
  39. IPRATROPIUM [Suspect]
     Active Substance: IPRATROPIUM
     Route: 055
  40. IPRATROPIUM [Suspect]
     Active Substance: IPRATROPIUM
  41. IPRATROPIUM [Suspect]
     Active Substance: IPRATROPIUM
  42. IPRATROPIUM [Suspect]
     Active Substance: IPRATROPIUM
  43. IPRATROPIUM [Suspect]
     Active Substance: IPRATROPIUM
  44. IPRATROPIUM [Suspect]
     Active Substance: IPRATROPIUM
  45. IPRATROPIUM [Suspect]
     Active Substance: IPRATROPIUM
     Route: 055
  46. IPRATROPIUM [Suspect]
     Active Substance: IPRATROPIUM
  47. IPRATROPIUM [Suspect]
     Active Substance: IPRATROPIUM
  48. IPRATROPIUM [Suspect]
     Active Substance: IPRATROPIUM
  49. LEVOTHYROXINE SODIUM [Suspect]
     Active Substance: LEVOTHYROXINE SODIUM
     Indication: Product used for unknown indication
  50. MAGNESIUM CARBONATE [Suspect]
     Active Substance: MAGNESIUM CARBONATE
     Indication: Product used for unknown indication
  51. MORPHINE SULFATE [Suspect]
     Active Substance: MORPHINE SULFATE
     Indication: Product used for unknown indication
  52. NITROGLYCERIN [Suspect]
     Active Substance: NITROGLYCERIN
     Indication: Product used for unknown indication
  53. OSMITROL [Suspect]
     Active Substance: MANNITOL
     Indication: Product used for unknown indication
  54. PANTOPRAZOLE SODIUM [Suspect]
     Active Substance: PANTOPRAZOLE SODIUM
     Indication: Product used for unknown indication
  55. PANTOPRAZOLE SODIUM [Suspect]
     Active Substance: PANTOPRAZOLE SODIUM
  56. HERBALS\PAULLINIA CUPANA SEED [Suspect]
     Active Substance: HERBALS\PAULLINIA CUPANA SEED
     Indication: Product used for unknown indication
  57. HERBALS\PAULLINIA CUPANA SEED [Suspect]
     Active Substance: HERBALS\PAULLINIA CUPANA SEED
  58. PHYTONADIONE [Suspect]
     Active Substance: PHYTONADIONE
     Indication: Vitamin supplementation
  59. PHYTONADIONE [Suspect]
     Active Substance: PHYTONADIONE
     Indication: Product used for unknown indication
  60. PHYTONADIONE [Suspect]
     Active Substance: PHYTONADIONE
     Indication: Off label use
  61. PHYTONADIONE [Suspect]
     Active Substance: PHYTONADIONE
  62. PHYTONADIONE [Suspect]
     Active Substance: PHYTONADIONE
  63. PHYTONADIONE [Suspect]
     Active Substance: PHYTONADIONE
  64. PHYTONADIONE [Suspect]
     Active Substance: PHYTONADIONE
  65. PHYTONADIONE [Suspect]
     Active Substance: PHYTONADIONE
  66. POTASSIUM CHLORIDE [Suspect]
     Active Substance: POTASSIUM CHLORIDE
     Indication: Product used for unknown indication
  67. DOCUSATE SODIUM\SENNOSIDES A AND B [Suspect]
     Active Substance: DOCUSATE SODIUM\SENNOSIDES A AND B
     Indication: Product used for unknown indication
  68. SINGULAIR [Suspect]
     Active Substance: MONTELUKAST SODIUM
     Indication: Product used for unknown indication
  69. SINGULAIR [Suspect]
     Active Substance: MONTELUKAST SODIUM
  70. ACETAMINOPHEN [Suspect]
     Active Substance: ACETAMINOPHEN
     Indication: Product used for unknown indication
  71. ACETAMINOPHEN [Suspect]
     Active Substance: ACETAMINOPHEN
  72. ALBUTEROL SULFATE [Suspect]
     Active Substance: ALBUTEROL SULFATE
     Indication: Asthma
  73. .ALPHA.-TOCOPHEROL\ALLANTOIN [Suspect]
     Active Substance: .ALPHA.-TOCOPHEROL\ALLANTOIN
     Indication: Product used for unknown indication
  74. .ALPHA.-TOCOPHEROL\ALLANTOIN [Suspect]
     Active Substance: .ALPHA.-TOCOPHEROL\ALLANTOIN
  75. ALLOPURINOL SODIUM [Suspect]
     Active Substance: ALLOPURINOL SODIUM
     Indication: Product used for unknown indication
  76. AMIODARONE HYDROCHLORIDE [Suspect]
     Active Substance: AMIODARONE HYDROCHLORIDE
     Indication: Product used for unknown indication
  77. BETAMETHASONE DIPROPIONATE\BETAMETHASONE SODIUM PHOSPHATE [Suspect]
     Active Substance: BETAMETHASONE DIPROPIONATE\BETAMETHASONE SODIUM PHOSPHATE
     Indication: Product used for unknown indication
  78. BETAMETHASONE DIPROPIONATE\BETAMETHASONE SODIUM PHOSPHATE [Suspect]
     Active Substance: BETAMETHASONE DIPROPIONATE\BETAMETHASONE SODIUM PHOSPHATE
  79. BETAMETHASONE DIPROPIONATE\BETAMETHASONE SODIUM PHOSPHATE [Suspect]
     Active Substance: BETAMETHASONE DIPROPIONATE\BETAMETHASONE SODIUM PHOSPHATE
  80. ANHYDROUS DIBASIC CALCIUM PHOSPHATE\BIOTIN [Suspect]
     Active Substance: ANHYDROUS DIBASIC CALCIUM PHOSPHATE\BIOTIN
     Indication: Product used for unknown indication
  81. ANHYDROUS DIBASIC CALCIUM PHOSPHATE\BIOTIN [Suspect]
     Active Substance: ANHYDROUS DIBASIC CALCIUM PHOSPHATE\BIOTIN
  82. BISACODYL [Suspect]
     Active Substance: BISACODYL
     Indication: Product used for unknown indication
  83. CALCITRIOL [Suspect]
     Active Substance: CALCITRIOL
     Indication: Product used for unknown indication
  84. CALCITRIOL [Suspect]
     Active Substance: CALCITRIOL
  85. CALCIUM GLYCEROPHOSPHATE [Suspect]
     Active Substance: CALCIUM GLYCEROPHOSPHATE
     Indication: Product used for unknown indication
  86. CHLORAMPHENICOL PALMITATE [Suspect]
     Active Substance: CHLORAMPHENICOL PALMITATE
     Indication: Product used for unknown indication
  87. CHLORPHENIRAMINE [Suspect]
     Active Substance: CHLORPHENIRAMINE
     Indication: Product used for unknown indication
  88. CITRIC ACID [Suspect]
     Active Substance: CITRIC ACID MONOHYDRATE
     Indication: Product used for unknown indication
  89. HYDROCORTISONE ACETATE [Suspect]
     Active Substance: HYDROCORTISONE ACETATE
     Indication: Product used for unknown indication
  90. CUPRIC OXIDE\FOLIC ACID\NIACIN\ZINC OXIDE [Suspect]
     Active Substance: CUPRIC OXIDE\FOLIC ACID\NIACIN\ZINC OXIDE
     Indication: Product used for unknown indication
  91. DEXILANT [Suspect]
     Active Substance: DEXLANSOPRAZOLE
     Indication: Product used for unknown indication
  92. DEXTROSE\WATER [Suspect]
     Active Substance: DEXTROSE\WATER
     Indication: Product used for unknown indication
  93. DOCONEXENT [Suspect]
     Active Substance: DOCONEXENT
     Indication: Product used for unknown indication
  94. FRAGMIN [Suspect]
     Active Substance: DALTEPARIN SODIUM
     Indication: Product used for unknown indication
  95. GABAPENTIN [Suspect]
     Active Substance: GABAPENTIN
     Indication: Product used for unknown indication
  96. DEXTROSE\HEPARIN SODIUM [Suspect]
     Active Substance: DEXTROSE\HEPARIN SODIUM
     Indication: Product used for unknown indication
  97. DEXTROSE\HEPARIN SODIUM [Suspect]
     Active Substance: DEXTROSE\HEPARIN SODIUM
  98. HERBALS\PAULLINIA CUPANA SEED [Suspect]
     Active Substance: HERBALS\PAULLINIA CUPANA SEED
     Indication: Product used for unknown indication
  99. HEPARIN [Suspect]
     Active Substance: HEPARIN SODIUM
     Indication: Product used for unknown indication
  100. HEPARIN [Suspect]
     Active Substance: HEPARIN SODIUM
  101. HEPARIN CALCIUM [Suspect]
     Active Substance: HEPARIN CALCIUM
     Indication: Product used for unknown indication
  102. HORSE CHESTNUT [Suspect]
     Active Substance: HORSE CHESTNUT
     Indication: Product used for unknown indication
  103. INSULIN ASPART [Suspect]
     Active Substance: INSULIN ASPART
     Indication: Product used for unknown indication
  104. JUBLIA [Suspect]
     Active Substance: EFINACONAZOLE
     Indication: Product used for unknown indication
     Route: 061
  105. JUBLIA [Suspect]
     Active Substance: EFINACONAZOLE
     Route: 061
  106. HYDROMORPHONE HYDROCHLORIDE [Suspect]
     Active Substance: HYDROMORPHONE HYDROCHLORIDE
     Indication: Product used for unknown indication
  107. PANAX GINSENG WHOLE [Suspect]
     Active Substance: PANAX GINSENG WHOLE
     Indication: Product used for unknown indication
  108. LANTHANUM CARBONATE [Suspect]
     Active Substance: LANTHANUM CARBONATE
     Indication: Product used for unknown indication
  109. LANTHANUM CARBONATE [Suspect]
     Active Substance: LANTHANUM CARBONATE
  110. LANTHANUM CARBONATE [Suspect]
     Active Substance: LANTHANUM CARBONATE
  111. LEUCOVORIN CALCIUM [Suspect]
     Active Substance: LEUCOVORIN CALCIUM
     Indication: Product used for unknown indication
  112. POLYETHYLENE GLYCOLS [Suspect]
     Active Substance: POLYETHYLENE GLYCOLS
     Indication: Product used for unknown indication
  113. MAGNESIUM OXIDE [Suspect]
     Active Substance: MAGNESIUM OXIDE
     Indication: Product used for unknown indication
  114. MALTOSE [Suspect]
     Active Substance: MALTOSE
     Indication: Product used for unknown indication
  115. MALTOSE [Suspect]
     Active Substance: MALTOSE
  116. MANNITOL [Suspect]
     Active Substance: MANNITOL
     Indication: Product used for unknown indication
  117. MESALAMINE [Suspect]
     Active Substance: MESALAMINE
     Indication: Product used for unknown indication
  118. METRONIDAZOLE BENZOATE [Suspect]
     Active Substance: METRONIDAZOLE BENZOATE
     Indication: Off label use
  119. METRONIDAZOLE BENZOATE [Suspect]
     Active Substance: METRONIDAZOLE BENZOATE
     Indication: Intentional product misuse
  120. METRONIDAZOLE BENZOATE [Suspect]
     Active Substance: METRONIDAZOLE BENZOATE
     Indication: Bacterial infection
  121. METRONIDAZOLE BENZOATE [Suspect]
     Active Substance: METRONIDAZOLE BENZOATE
  122. MOMETASONE FUROATE [Suspect]
     Active Substance: MOMETASONE FUROATE
     Indication: Product used for unknown indication
  123. MORPHINE HYDROCHLORIDE [Suspect]
     Active Substance: MORPHINE HYDROCHLORIDE
     Indication: Product used for unknown indication
  124. SODIUM CHLORIDE [Suspect]
     Active Substance: SODIUM CHLORIDE
     Indication: Product used for unknown indication
  125. NOREPINEPHRINE BITARTRATE [Suspect]
     Active Substance: NOREPINEPHRINE BITARTRATE
     Indication: Product used for unknown indication
  126. NOREPINEPHRINE BITARTRATE [Suspect]
     Active Substance: NOREPINEPHRINE BITARTRATE
  127. NOVORAPID [Suspect]
     Active Substance: INSULIN ASPART
     Indication: Product used for unknown indication
  128. NUCALA [Suspect]
     Active Substance: MEPOLIZUMAB
     Indication: Product used for unknown indication
  129. ONDANSETRON HYDROCHLORIDE [Suspect]
     Active Substance: ONDANSETRON HYDROCHLORIDE
     Indication: Product used for unknown indication
  130. OSELTAMIVIR [Suspect]
     Active Substance: OSELTAMIVIR
     Indication: Product used for unknown indication
  131. OSELTAMIVIR [Suspect]
     Active Substance: OSELTAMIVIR
  132. POLYETHYLENE GLYCOL 3350 [Suspect]
     Active Substance: POLYETHYLENE GLYCOL 3350
     Indication: Product used for unknown indication
  133. SODIUM PHOSPHATE, MONOBASIC [Suspect]
     Active Substance: SODIUM PHOSPHATE, MONOBASIC
     Indication: Product used for unknown indication
  134. VITAMIN D3 [Suspect]
     Active Substance: CHOLECALCIFEROL
     Indication: Product used for unknown indication
  135. ZOCOR [Suspect]
     Active Substance: SIMVASTATIN
     Indication: Product used for unknown indication
  136. ZOCOR [Suspect]
     Active Substance: SIMVASTATIN
  137. FURAZOLIDONE [Suspect]
     Active Substance: FURAZOLIDONE
     Indication: Product used for unknown indication
  138. CALCIUM ASCORBATE [Suspect]
     Active Substance: CALCIUM ASCORBATE
     Indication: Product used for unknown indication

REACTIONS (72)
  - Activated partial thromboplastin time prolonged [Fatal]
  - Diabetes mellitus [Fatal]
  - Drug ineffective [Fatal]
  - Drug intolerance [Fatal]
  - Drug therapy [Fatal]
  - Headache [Fatal]
  - Hypercholesterolaemia [Fatal]
  - Hyperphosphataemia [Fatal]
  - Hypertension [Fatal]
  - Hypophosphataemia [Fatal]
  - Incorrect route of product administration [Fatal]
  - Malignant melanoma stage 0 [Fatal]
  - Myasthenia gravis [Fatal]
  - Oedema peripheral [Fatal]
  - Product use in unapproved indication [Fatal]
  - Pulmonary embolism [Fatal]
  - Respiratory symptom [Fatal]
  - Somnolence [Fatal]
  - Transaminases increased [Fatal]
  - Troponin increased [Fatal]
  - Ulcer [Fatal]
  - Chronic obstructive pulmonary disease [Fatal]
  - Anaemia [Fatal]
  - Analgesic therapy [Fatal]
  - Antacid therapy [Fatal]
  - Anticoagulant therapy [Fatal]
  - Aspiration [Fatal]
  - Asthenia [Fatal]
  - Asthma [Fatal]
  - Bacterial infection [Fatal]
  - Benign prostatic hyperplasia [Fatal]
  - Blood calcium increased [Fatal]
  - Blood creatinine increased [Fatal]
  - Blood test abnormal [Fatal]
  - Breath sounds abnormal [Fatal]
  - Bronchopulmonary aspergillosis allergic [Fatal]
  - Cardiovascular disorder [Fatal]
  - Condition aggravated [Fatal]
  - Congenital hiatus hernia [Fatal]
  - Coronary artery disease [Fatal]
  - Drug hypersensitivity [Fatal]
  - End stage renal disease [Fatal]
  - Fatigue [Fatal]
  - Full blood count abnormal [Fatal]
  - Gastrointestinal disorder [Fatal]
  - General physical health deterioration [Fatal]
  - Gout [Fatal]
  - Hyperlipidaemia [Fatal]
  - Hyponatraemia [Fatal]
  - Intentional product misuse [Fatal]
  - Joint injury [Fatal]
  - Liver disorder [Fatal]
  - Lower respiratory tract infection [Fatal]
  - Lung disorder [Fatal]
  - Micturition urgency [Fatal]
  - Multiple organ dysfunction syndrome [Fatal]
  - Musculoskeletal stiffness [Fatal]
  - Neuralgia [Fatal]
  - Off label use [Fatal]
  - Pain [Fatal]
  - Pleuritic pain [Fatal]
  - Product dose omission issue [Fatal]
  - Pyrexia [Fatal]
  - Sepsis [Fatal]
  - Sleep disorder [Fatal]
  - Sleep disorder therapy [Fatal]
  - Stress [Fatal]
  - Swelling [Fatal]
  - Thrombosis [Fatal]
  - Transient ischaemic attack [Fatal]
  - Tremor [Fatal]
  - Upper respiratory tract infection [Fatal]
